FAERS Safety Report 14727331 (Version 4)
Quarter: 2018Q2

REPORT INFORMATION
  Report Type: Spontaneous
  Country: SK (occurrence: SK)
  Receive Date: 20180406
  Receipt Date: 20180625
  Transmission Date: 20180711
  Serious: Yes (Other)
  Sender: FDA-Public Use
  Company Number: SK-REGENERON PHARMACEUTICALS, INC.-2018-20378

PATIENT

DRUGS (13)
  1. EYLEA [Suspect]
     Active Substance: AFLIBERCEPT
     Dosage: UNK, ONCE,  LEFT EYE
     Dates: start: 20170725, end: 20170725
  2. EYLEA [Suspect]
     Active Substance: AFLIBERCEPT
     Dosage: UNK, ONCE,  LEFT EYE
     Dates: start: 20170123, end: 20170123
  3. EYLEA [Suspect]
     Active Substance: AFLIBERCEPT
     Dosage: UNK, ONCE,  LEFT EYE
     Dates: start: 20170320, end: 20170320
  4. EYLEA [Suspect]
     Active Substance: AFLIBERCEPT
     Dosage: UNK, ONCE,  LEFT EYE
     Dates: start: 20170502, end: 20170502
  5. EYLEA [Suspect]
     Active Substance: AFLIBERCEPT
     Dosage: UNK, ONCE,  LEFT EYE
     Dates: start: 20170828, end: 20170828
  6. EYLEA [Suspect]
     Active Substance: AFLIBERCEPT
     Dosage: UNK, ONCE,  LEFT EYE
     Dates: start: 20180116, end: 20180116
  7. EYLEA [Suspect]
     Active Substance: AFLIBERCEPT
     Dosage: UNK, ONCE,  LEFT EYE
     Dates: start: 20161128, end: 20161128
  8. EYLEA [Suspect]
     Active Substance: AFLIBERCEPT
     Dosage: UNK, ONCE,  LEFT EYE
     Dates: start: 20180213, end: 20180213
  9. EYLEA [Suspect]
     Active Substance: AFLIBERCEPT
     Dosage: UNK, ONCE,  LEFT EYE
     Dates: start: 20160708, end: 20160708
  10. EYLEA [Suspect]
     Active Substance: AFLIBERCEPT
     Indication: NEOVASCULAR AGE-RELATED MACULAR DEGENERATION
     Dosage: UNK, ONCE, LEFT EYE
     Dates: start: 20160315, end: 20160315
  11. EYLEA [Suspect]
     Active Substance: AFLIBERCEPT
     Dosage: UNK, ONCE,  LEFT EYE
     Dates: start: 20161003, end: 20161003
  12. EYLEA [Suspect]
     Active Substance: AFLIBERCEPT
     Dosage: UNK, ONCE,  LEFT EYE
     Dates: start: 20170925, end: 20170925
  13. EYLEA [Suspect]
     Active Substance: AFLIBERCEPT
     Dosage: UNK, ONCE,  LEFT EYE
     Dates: start: 20160513, end: 20160513

REACTIONS (2)
  - Eye haemorrhage [Unknown]
  - Retinal detachment [Unknown]

NARRATIVE: CASE EVENT DATE: 20180320
